FAERS Safety Report 15160323 (Version 1)
Quarter: 2018Q3

REPORT INFORMATION
  Report Type: Spontaneous
  Country: US (occurrence: US)
  Receive Date: 20180621
  Receipt Date: 20180621
  Transmission Date: 20181010
  Serious: No
  Sender: FDA-Public Use
  Company Number: None

PATIENT
  Age: 53 Year
  Sex: Female

DRUGS (1)
  1. COSENTYX [Suspect]
     Active Substance: SECUKINUMAB
     Indication: PSORIASIS
     Dosage: ?          OTHER FREQUENCY:EVERY 4 WEEKS ;?
     Route: 058
     Dates: start: 20180105

REACTIONS (3)
  - Pain in extremity [None]
  - Malignant melanoma [None]
  - Psoriasis [None]

NARRATIVE: CASE EVENT DATE: 20180601
